FAERS Safety Report 5155173-2 (Version None)
Quarter: 2006Q4

REPORT INFORMATION
  Report Type: 
  Country: None (occurrence: None)
  Receive Date: 20061121
  Receipt Date: 20061003
  Transmission Date: 20070319
  Serious: Yes (Hospitalization)
  Sender: FDA-Public Use
  Company Number: IT-ELI_LILLY_AND_COMPANY-IT200610001291

PATIENT
  Age: 74 Year
  Sex: Female

DRUGS (4)
  1. FORTEO [Suspect]
     Indication: OSTEOPOROSIS
     Dosage: 20 UG, UNK
     Route: 058
     Dates: start: 20060925, end: 20060925
  2. DIGOXIN [Concomitant]
     Dosage: 0.125 MG, DAILY (1/D)
     Route: 048
  3. NITROGLICERINA [Concomitant]
     Dosage: 10 MG, UNK
     Route: 062
  4. OMEPRAZOLE [Concomitant]
     Dosage: 20 MG, DAILY (1/D)
     Route: 048

REACTIONS (1)
  - RECTAL HAEMORRHAGE [None]
